FAERS Safety Report 10630345 (Version 1)
Quarter: 2014Q4

REPORT INFORMATION
  Report Type: Spontaneous
  Country: US (occurrence: US)
  Receive Date: 20141205
  Receipt Date: 20141205
  Transmission Date: 20150529
  Serious: No
  Sender: FDA-Public Use
  Company Number: US-BRISTOL-MYERS SQUIBB COMPANY-21361480

PATIENT
  Age: 53 Year
  Sex: Female

DRUGS (1)
  1. ABILIFY [Suspect]
     Active Substance: ARIPIPRAZOLE
     Indication: BIPOLAR I DISORDER
     Route: 048
     Dates: start: 20140603

REACTIONS (8)
  - Anxiety [Unknown]
  - Migraine [Unknown]
  - Dizziness [Unknown]
  - Chest pain [Unknown]
  - Feeling hot [Unknown]
  - Hypersensitivity [Unknown]
  - Extrasystoles [Unknown]
  - Nausea [Unknown]

NARRATIVE: CASE EVENT DATE: 2014
